FAERS Safety Report 14314093 (Version 5)
Quarter: 2019Q1

REPORT INFORMATION
  Report Type: Spontaneous
  Country: US (occurrence: US)
  Receive Date: 20171221
  Receipt Date: 20190122
  Transmission Date: 20190417
  Serious: No
  Sender: FDA-Public Use
  Company Number: US-PFIZER INC-2017538178

PATIENT
  Age: 47 Year
  Sex: Female
  Weight: 72.56 kg

DRUGS (9)
  1. NEOSAR [Concomitant]
     Active Substance: CYCLOPHOSPHAMIDE
     Dosage: UNK
  2. ADRYAMICIN [Concomitant]
     Dosage: UNK
  3. DOCETAXEL. [Suspect]
     Active Substance: DOCETAXEL
     Indication: BREAST CANCER FEMALE
     Dosage: UNK
     Dates: start: 20140201, end: 20150501
  4. DOCETAXEL. [Suspect]
     Active Substance: DOCETAXEL
     Indication: BREAST CANCER FEMALE
     Dosage: UNK
     Dates: start: 20140201, end: 20150501
  5. TAXOTERE [Suspect]
     Active Substance: DOCETAXEL
     Indication: BREAST CANCER FEMALE
     Dosage: UNK
     Dates: start: 20140201, end: 20150501
  6. HERCEPTIN [Suspect]
     Active Substance: TRASTUZUMAB
     Dosage: UNK
     Dates: start: 20140201, end: 20150501
  7. DOCETAXEL. [Suspect]
     Active Substance: DOCETAXEL
     Dosage: 125 MG, EVERY 3 WEEKS, 4 CYCLES
     Dates: start: 201402, end: 201503
  8. DOCETAXEL. [Suspect]
     Active Substance: DOCETAXEL
     Dosage: 125 MG, EVERY 3 WEEKS, 4 CYCLES
     Dates: start: 201402, end: 201503
  9. TAXOTERE [Suspect]
     Active Substance: DOCETAXEL
     Dosage: 125 MG, EVERY 3 WEEKS, 4 CYCLES
     Dates: start: 201402, end: 201503

REACTIONS (5)
  - Alopecia [Not Recovered/Not Resolved]
  - Hair colour changes [Not Recovered/Not Resolved]
  - Hair texture abnormal [Not Recovered/Not Resolved]
  - Hair disorder [Not Recovered/Not Resolved]
  - Madarosis [Not Recovered/Not Resolved]

NARRATIVE: CASE EVENT DATE: 201405
